FAERS Safety Report 5950554-9 (Version None)
Quarter: 2008Q4

REPORT INFORMATION
  Report Type: 
  Country: None (occurrence: None)
  Receive Date: 20081022
  Receipt Date: 20080730
  Transmission Date: 20090506
  Serious: No
  Sender: FDA-Public Use
  Company Number: SPV1-2008-01625

PATIENT
  Age: 18 Year
  Sex: Female
  Weight: 72.6 kg

DRUGS (7)
  1. VYVANSE [Suspect]
     Indication: ATTENTION DEFICIT/HYPERACTIVITY DISORDER
     Dosage: 70 MG, 1X/DAY:QD, ORAL ; 70 MG, 2X/DAY:BID, ORAL
     Route: 048
     Dates: start: 20070801, end: 20080301
  2. VYVANSE [Suspect]
     Indication: ATTENTION DEFICIT/HYPERACTIVITY DISORDER
     Dosage: 70 MG, 1X/DAY:QD, ORAL ; 70 MG, 2X/DAY:BID, ORAL
     Route: 048
     Dates: start: 20080301
  3. WELLBUTRIN [Suspect]
     Indication: DEPRESSION
     Dosage: ORAL
     Route: 048
     Dates: start: 20010101, end: 20080301
  4. WELLBUTRIN [Suspect]
     Indication: NICOTINE DEPENDENCE
     Dosage: ORAL
     Route: 048
     Dates: start: 20010101, end: 20080301
  5. WELLBUTRIN [Suspect]
     Indication: DEPRESSION
     Dosage: ORAL
     Route: 048
     Dates: start: 20080701
  6. WELLBUTRIN [Suspect]
     Indication: NICOTINE DEPENDENCE
     Dosage: ORAL
     Route: 048
     Dates: start: 20080701
  7. METHAMPHETAMINE HYDROCHLORIDE [Suspect]
     Dates: start: 20080101

REACTIONS (9)
  - ANGER [None]
  - CRYING [None]
  - DEPRESSION [None]
  - DRUG ABUSE [None]
  - DRUG EFFECT DECREASED [None]
  - INAPPROPRIATE SCHEDULE OF DRUG ADMINISTRATION [None]
  - INSOMNIA [None]
  - OVERDOSE [None]
  - THEFT [None]
